FAERS Safety Report 15491473 (Version 1)
Quarter: 2018Q4

REPORT INFORMATION
  Report Type: Report from Study
  Country: RU (occurrence: RU)
  Receive Date: 20181012
  Receipt Date: 20181012
  Transmission Date: 20190205
  Serious: Yes (Other)
  Sender: FDA-Public Use
  Company Number: RU-ASTRAZENECA-2018SE91135

PATIENT
  Age: 80 Year
  Sex: Male

DRUGS (6)
  1. FORXIGA [Suspect]
     Active Substance: DAPAGLIFLOZIN
     Indication: TYPE 2 DIABETES MELLITUS
     Route: 048
     Dates: start: 201807, end: 201809
  2. THIOCTIC ACID [Concomitant]
     Active Substance: THIOCTIC ACID
  3. FORXIGA [Suspect]
     Active Substance: DAPAGLIFLOZIN
     Indication: TYPE 2 DIABETES MELLITUS
     Dosage: HALF A TABLET 10 MAG DAILY FOR THE FIRST 2 DAYS
     Route: 048
     Dates: start: 201804, end: 201806
  4. GLUCOPHAGE [Concomitant]
     Active Substance: METFORMIN HYDROCHLORIDE
     Dosage: 1000
  5. FORXIGA [Suspect]
     Active Substance: DAPAGLIFLOZIN
     Indication: TYPE 2 DIABETES MELLITUS
     Route: 048
     Dates: start: 201804, end: 201806
  6. ACTOVEGIN [Concomitant]
     Active Substance: BLOOD, BOVINE

REACTIONS (3)
  - Product administered to patient of inappropriate age [Unknown]
  - Haemoglobin decreased [Recovered/Resolved]
  - Intentional product misuse [Recovered/Resolved]

NARRATIVE: CASE EVENT DATE: 201809
